FAERS Safety Report 17154977 (Version 1)
Quarter: 2019Q4

REPORT INFORMATION
  Report Type: Spontaneous
  Country: IN (occurrence: IN)
  Receive Date: 20191214
  Receipt Date: 20191214
  Transmission Date: 20200122
  Serious: Yes (Death)
  Sender: FDA-Public Use
  Company Number: IN-MYLANLABS-2019M1055618

PATIENT
  Age: 72 Year
  Sex: Male
  Weight: 84 kg

DRUGS (5)
  1. HERTRAZ [Suspect]
     Active Substance: TRASTUZUMAB
     Indication: BREAST CANCER METASTATIC
     Dosage: 440 MILLIGRAM, Q3W
     Route: 042
     Dates: start: 20161215
  2. HERLAPSA [Suspect]
     Active Substance: LAPATINIB
     Indication: BREAST CANCER METASTATIC
     Dosage: 250 MILLIGRAM, QD
     Route: 048
     Dates: start: 20190214
  3. HERTRAZ [Suspect]
     Active Substance: TRASTUZUMAB
     Dosage: UNK
     Route: 042
     Dates: start: 20190214
  4. TELMA [Concomitant]
     Active Substance: TELMISARTAN
     Indication: BLOOD PRESSURE ABNORMAL
     Dosage: 20 MILLIGRAM, QD
     Route: 048
     Dates: start: 1990
  5. LAPATINIB [Concomitant]
     Active Substance: LAPATINIB
     Indication: PRODUCT USED FOR UNKNOWN INDICATION
     Dosage: UNK

REACTIONS (3)
  - Diarrhoea [Recovering/Resolving]
  - Brain cancer metastatic [Fatal]
  - Respiratory failure [Fatal]

NARRATIVE: CASE EVENT DATE: 20190214
